FAERS Safety Report 8475009-1 (Version None)
Quarter: 2012Q2

REPORT INFORMATION
  Report Type: 
  Country: None (occurrence: None)
  Receive Date: 20120628
  Receipt Date: 20120618
  Transmission Date: 20120825
  Serious: Yes (Hospitalization)
  Sender: FDA-Public Use
  Company Number: US-BAYER-2012-061974

PATIENT
  Age: 48 Year
  Sex: Female
  Weight: 67.12 kg

DRUGS (5)
  1. YAZ [Suspect]
  2. SYNTHROID [Concomitant]
  3. ATIVAN [Concomitant]
  4. LEVOTHYROXINE [Concomitant]
     Dosage: 75MCG
     Dates: start: 20071016, end: 20120302
  5. ANTACIDS [Concomitant]

REACTIONS (1)
  - ACUTE MYOCARDIAL INFARCTION [None]
